FAERS Safety Report 21702549 (Version 1)
Quarter: 2022Q4

REPORT INFORMATION
  Report Type: Spontaneous
  Country: US (occurrence: US)
  Receive Date: 20221208
  Receipt Date: 20221208
  Transmission Date: 20230113
  Serious: No
  Sender: FDA-Public Use
  Company Number: US-IBSA PHARMA INC.-2021IBS000234

PATIENT

DRUGS (1)
  1. TIROSINT [Suspect]
     Active Substance: LEVOTHYROXINE SODIUM
     Indication: Product used for unknown indication
     Dosage: 50 MCG AND 2 CAPSULES OF 50 MCG (100MCG) EVERY ORTHER DAY
     Route: 048
     Dates: start: 201504

REACTIONS (3)
  - Dyspepsia [Not Recovered/Not Resolved]
  - Abdominal pain upper [Not Recovered/Not Resolved]
  - Product quality issue [Unknown]
